FAERS Safety Report 20777723 (Version 1)
Quarter: 2022Q2

REPORT INFORMATION
  Report Type: Spontaneous
  Country: US (occurrence: None)
  Receive Date: 20220502
  Receipt Date: 20220502
  Transmission Date: 20220721
  Serious: Yes (Hospitalization)
  Sender: FDA-Public Use
  Company Number: None

PATIENT
  Sex: Female

DRUGS (3)
  1. CAPECITABINE [Suspect]
     Active Substance: CAPECITABINE
     Indication: Colon cancer
     Route: 048
     Dates: start: 20210311
  2. ALPRAZOLAM TAB 0.5MG OD [Concomitant]
  3. LIDO/PRILOCN CRE 2.5-2.5% [Concomitant]

REACTIONS (1)
  - Surgery [None]
